FAERS Safety Report 12883205 (Version 1)
Quarter: 2016Q4

REPORT INFORMATION
  Report Type: Spontaneous
  Country: US (occurrence: US)
  Receive Date: 20161025
  Receipt Date: 20161025
  Transmission Date: 20170207
  Serious: Yes (Other)
  Sender: FDA-Public Use
  Company Number: US-STANDARD HOMEOPATHIC COMPANY-1058802

PATIENT
  Sex: Male

DRUGS (1)
  1. BABY TEETHING (HYLAND HOMEOPATHIC) [Suspect]
     Active Substance: HOMEOPATHICS
     Indication: TEETHING
     Route: 048
     Dates: start: 2016, end: 2016

REACTIONS (4)
  - Pyrexia [None]
  - Constipation [None]
  - Seizure [None]
  - Vomiting [None]

NARRATIVE: CASE EVENT DATE: 2016
